FAERS Safety Report 11042282 (Version 1)
Quarter: 2015Q2

REPORT INFORMATION
  Report Type: Report from Study
  Country: AT (occurrence: AT)
  Receive Date: 20150416
  Receipt Date: 20150416
  Transmission Date: 20150821
  Serious: Yes (Hospitalization)
  Sender: FDA-Public Use
  Company Number: PHHO2015AT006102

PATIENT
  Age: 41 Year
  Sex: Male

DRUGS (8)
  1. APREDNISLON [Concomitant]
     Active Substance: PREDNISOLONE
     Indication: RENAL TRANSPLANT
     Route: 065
  2. TEICOPLANIN [Concomitant]
     Active Substance: TEICOPLANIN
     Route: 065
  3. MYCOPHENOLIC ACID. [Suspect]
     Active Substance: MYCOPHENOLIC ACID
     Dosage: 720 MG, QD
     Route: 048
  4. MYCOPHENOLIC ACID. [Suspect]
     Active Substance: MYCOPHENOLIC ACID
     Indication: RENAL TRANSPLANT
     Dosage: 1440 MG, QD
     Route: 048
     Dates: start: 20100418
  5. MYCOPHENOLIC ACID. [Suspect]
     Active Substance: MYCOPHENOLIC ACID
     Dosage: 360 MG, QD
     Route: 048
     Dates: start: 20100730, end: 20100809
  6. PROGRAF [Concomitant]
     Active Substance: TACROLIMUS\TACROLIMUS ANHYDROUS
     Indication: RENAL TRANSPLANT
  7. MEROPENEM. [Concomitant]
     Active Substance: MEROPENEM
     Route: 065
  8. FLUCONAZOLE. [Concomitant]
     Active Substance: FLUCONAZOLE
     Route: 065

REACTIONS (4)
  - Kidney transplant rejection [Recovered/Resolved]
  - Acute kidney injury [Recovered/Resolved]
  - Haematoma [Recovered/Resolved]
  - Acute kidney injury [Recovered/Resolved]

NARRATIVE: CASE EVENT DATE: 20100422
